FAERS Safety Report 4878707-1 (Version None)
Quarter: 2006Q1

REPORT INFORMATION
  Report Type: 
  Country: None (occurrence: None)
  Receive Date: 20060112
  Receipt Date: 20060103
  Transmission Date: 20060701
  Serious: Yes (Hospitalization)
  Sender: FDA-Public Use
  Company Number: FR-JNJFOC-20060100604

PATIENT
  Age: 15 Year
  Sex: Male
  Weight: 50 kg

DRUGS (3)
  1. RISPERDAL [Suspect]
     Route: 048
  2. SABRIL [Suspect]
     Indication: EPILEPSY
     Route: 048
  3. RIVOTRIL [Concomitant]

REACTIONS (8)
  - APATHY [None]
  - CLONUS [None]
  - CONVULSION [None]
  - DYSSTASIA [None]
  - EXTRAPYRAMIDAL DISORDER [None]
  - SALIVARY HYPERSECRETION [None]
  - SOMNOLENCE [None]
  - TACHYCARDIA [None]
